FAERS Safety Report 11219975 (Version 1)
Quarter: 2015Q2

REPORT INFORMATION
  Report Type: Spontaneous
  Country: US (occurrence: None)
  Receive Date: 20150624
  Receipt Date: 20150624
  Transmission Date: 20150821
  Serious: Yes (Death)
  Sender: FDA-Public Use
  Company Number: NL01PV15_39136

PATIENT
  Age: 1 Day
  Sex: Female

DRUGS (16)
  1. PROMETHAZINE [Suspect]
     Active Substance: PROMETHAZINE\PROMETHAZINE HYDROCHLORIDE
     Route: 064
     Dates: start: 201403
  2. OXYTOCIN. [Suspect]
     Active Substance: OXYTOCIN
     Route: 064
     Dates: start: 201403
  3. TYLENOL [Suspect]
     Active Substance: ACETAMINOPHEN
     Route: 064
     Dates: start: 201403
  4. BENZOCAINE. [Suspect]
     Active Substance: BENZOCAINE
     Route: 064
     Dates: start: 201403
  5. METRONIDAZOLE. [Suspect]
     Active Substance: METRONIDAZOLE
     Route: 064
     Dates: start: 201403
  6. PRENATAL VITAMINS /02014401/ [Suspect]
     Active Substance: VITAMINS
     Route: 064
     Dates: start: 201403
  7. DOCUSATE SODIUM. [Suspect]
     Active Substance: DOCUSATE SODIUM
     Route: 064
     Dates: start: 201403
  8. ZOLPIDEM [Suspect]
     Active Substance: ZOLPIDEM\ZOLPIDEM TARTRATE
     Route: 064
     Dates: start: 201403
  9. DEXTROSE IN RINGERS [Suspect]
     Active Substance: CALCIUM CHLORIDE\DEXTROSE\POTASSIUM CHLORIDE\SODIUM CHLORIDE
     Route: 064
     Dates: start: 201403
  10. NAROPIN [Suspect]
     Active Substance: ROPIVACAINE HYDROCHLORIDE
     Route: 064
     Dates: start: 201403
  11. PITOCIN [Suspect]
     Active Substance: OXYTOCIN
     Route: 064
     Dates: start: 201403
  12. VALTREX [Suspect]
     Active Substance: VALACYCLOVIR HYDROCHLORIDE
     Route: 064
     Dates: start: 201403
  13. IBUPROFEN. [Suspect]
     Active Substance: IBUPROFEN
     Route: 064
     Dates: start: 201403
  14. OXYCODONE [Suspect]
     Active Substance: OXYCODONE
     Route: 064
     Dates: start: 201403
  15. ONDANSETRON [Suspect]
     Active Substance: ONDANSETRON
     Dosage: 4 MG (2 MG/ML (MULTI-DOSE VIAL))
     Route: 064
     Dates: start: 201403
  16. SIMETHICONE [Suspect]
     Active Substance: DIMETHICONE\SILICON DIOXIDE\SIMETHICONE
     Route: 064
     Dates: start: 201403

REACTIONS (10)
  - Neonatal tachycardia [None]
  - Cardiomyopathy [None]
  - Metabolic acidosis [None]
  - Respiratory distress [None]
  - Temperature regulation disorder [None]
  - Shock [None]
  - Product quality issue [None]
  - Maternal drugs affecting foetus [None]
  - Cardiac disorder [None]
  - Poor quality drug administered [None]

NARRATIVE: CASE EVENT DATE: 201403
